FAERS Safety Report 25989530 (Version 2)
Quarter: 2025Q4

REPORT INFORMATION
  Report Type: Report from Study
  Country: IN (occurrence: IN)
  Receive Date: 20251103
  Receipt Date: 20251114
  Transmission Date: 20260118
  Serious: Yes (Death, Other)
  Sender: ROCHE
  Company Number: IN-ROCHE-10000418896

PATIENT
  Age: 57 Year
  Sex: Male

DRUGS (6)
  1. CELLCEPT [Suspect]
     Active Substance: MYCOPHENOLATE MOFETIL
     Indication: Renal transplant
     Dosage: 500 MG B.I.D
     Route: 048
     Dates: start: 20160720
  2. NEORAL [Concomitant]
     Active Substance: CYCLOSPORINE
  3. PREDNISOLONE [Concomitant]
     Active Substance: PREDNISOLONE
  4. Inj. Novorapid [Concomitant]
  5. Tab. Minipress XL [Concomitant]
  6. Nephro HP [Concomitant]
     Dosage: 2 TSP BD

REACTIONS (8)
  - Transplant dysfunction [Unknown]
  - Hypertension [Unknown]
  - Lymphoma [Unknown]
  - Haemorrhagic stroke [Unknown]
  - Hyperproteinaemia [Unknown]
  - Oedema [Unknown]
  - Stasis dermatitis [Unknown]
  - Death [Fatal]

NARRATIVE: CASE EVENT DATE: 20200101
